FAERS Safety Report 24940515 (Version 2)
Quarter: 2025Q1

REPORT INFORMATION
  Report Type: Spontaneous
  Country: FR (occurrence: FR)
  Receive Date: 20250207
  Receipt Date: 20250320
  Transmission Date: 20250408
  Serious: Yes (Hospitalization, Disabling, Other)
  Sender: AUROBINDO
  Company Number: FR-MLMSERVICE-20250120-PI357527-00270-1

PATIENT
  Age: 50 Year
  Sex: Male

DRUGS (2)
  1. PREDNISOLONE [Suspect]
     Active Substance: PREDNISOLONE
     Indication: Otitis externa
     Dosage: 60 MILLIGRAM, ONCE A DAY
     Route: 048
  2. AMOXICILLIN\CLAVULANIC ACID [Suspect]
     Active Substance: AMOXICILLIN\CLAVULANIC ACID
     Indication: Otitis externa
     Route: 065

REACTIONS (8)
  - Deafness [Not Recovered/Not Resolved]
  - Mastoiditis [Recovering/Resolving]
  - Pulmonary tuberculosis [Recovering/Resolving]
  - Bone tuberculosis [Recovering/Resolving]
  - Osteolysis [Recovering/Resolving]
  - Otitis externa [Recovering/Resolving]
  - Condition aggravated [Recovering/Resolving]
  - Pseudomonas infection [Unknown]
